FAERS Safety Report 4995963-X (Version None)
Quarter: 2006Q2

REPORT INFORMATION
  Report Type: 
  Country: None (occurrence: None)
  Receive Date: 20060508
  Receipt Date: 20050928
  Transmission Date: 20061013
  Serious: Yes (Hospitalization, Other)
  Sender: FDA-Public Use
  Company Number: US-MERCK-0510USA04632

PATIENT
  Age: 53 Year
  Sex: Female
  Weight: 84 kg

DRUGS (17)
  1. VIOXX [Suspect]
     Indication: ARTHRITIS
     Route: 048
     Dates: start: 19990806, end: 20000501
  2. VIOXX [Suspect]
     Route: 048
     Dates: start: 20000501, end: 20040501
  3. ZYRTEC [Concomitant]
     Route: 065
  4. NASONEX [Concomitant]
     Route: 065
  5. PREMPRO [Concomitant]
     Route: 065
  6. [THERAPY UNSPECIFIED] [Concomitant]
     Indication: BLOOD PRESSURE
     Route: 065
  7. PROVENTIL [Concomitant]
     Route: 065
  8. ASPIRIN [Concomitant]
     Route: 065
  9. CYANOCOBALAMIN [Concomitant]
     Route: 065
  10. GLUCOPHAGE [Concomitant]
     Route: 065
  11. PRILOSEC [Concomitant]
     Route: 065
  12. SKELAXIN [Concomitant]
     Route: 065
  13. DIPYRIDAMOLE [Concomitant]
     Route: 065
  14. LASIX [Concomitant]
     Route: 065
  15. XANAX [Concomitant]
     Route: 065
  16. ZESTRIL [Concomitant]
     Route: 065
  17. KLOR-CON [Concomitant]
     Route: 065

REACTIONS (14)
  - ARTERIOSCLEROSIS [None]
  - BLOOD PRESSURE INCREASED [None]
  - CAROTID ARTERY OCCLUSION [None]
  - CEREBROVASCULAR ACCIDENT [None]
  - DIZZINESS [None]
  - FIBROMYALGIA [None]
  - HEADACHE [None]
  - HYPERCHOLESTEROLAEMIA [None]
  - INJURY [None]
  - LUNG DISORDER [None]
  - NEUROLOGICAL SYMPTOM [None]
  - OTITIS EXTERNA [None]
  - SPINAL DISORDER [None]
  - TRANSIENT ISCHAEMIC ATTACK [None]
